FAERS Safety Report 13029396 (Version 1)
Quarter: 2016Q4

REPORT INFORMATION
  Report Type: Spontaneous
  Country: PT (occurrence: PT)
  Receive Date: 20161215
  Receipt Date: 20161215
  Transmission Date: 20170207
  Serious: Yes (Other)
  Sender: FDA-Public Use
  Company Number: PT-ABBVIE-16K-130-1805446-00

PATIENT
  Age: 59 Year
  Sex: Male

DRUGS (1)
  1. HUMIRA [Suspect]
     Active Substance: ADALIMUMAB
     Indication: COLITIS ULCERATIVE
     Route: 058
     Dates: end: 2016

REACTIONS (1)
  - Bladder neoplasm [Unknown]

NARRATIVE: CASE EVENT DATE: 2016
